FAERS Safety Report 22109055 (Version 1)
Quarter: 2023Q1

REPORT INFORMATION
  Report Type: Spontaneous
  Country: JP (occurrence: JP)
  Receive Date: 20230317
  Receipt Date: 20230317
  Transmission Date: 20230418
  Serious: Yes (Death, Hospitalization, Other)
  Sender: FDA-Public Use
  Company Number: JP-GSKJP-JP2023JPN039276AA

PATIENT

DRUGS (3)
  1. SUMATRIPTAN SUCCINATE [Suspect]
     Active Substance: SUMATRIPTAN SUCCINATE
     Indication: Sinus headache
     Dosage: 50 MG, SINGLE
     Route: 048
  2. DICLOFENAC SODIUM [Concomitant]
     Active Substance: DICLOFENAC SODIUM
     Indication: Sinus headache
     Dosage: 50, UNK
     Route: 054
  3. ETIZOLAM [Concomitant]
     Active Substance: ETIZOLAM
     Indication: Sinus headache
     Dosage: 1 MG, SINGLE
     Route: 048

REACTIONS (12)
  - Segmental arterial mediolysis [Fatal]
  - Haemothorax [Unknown]
  - Intra-abdominal haemorrhage [Unknown]
  - Intra-abdominal haematoma [Unknown]
  - Subarachnoid haemorrhage [Unknown]
  - Dyspnoea [Unknown]
  - Brain death [Fatal]
  - Cold sweat [Unknown]
  - Fall [Unknown]
  - Restlessness [Unknown]
  - Peripheral artery dissection [Unknown]
  - Product use in unapproved indication [Unknown]
